FAERS Safety Report 7894217-1 (Version None)
Quarter: 2011Q4

REPORT INFORMATION
  Report Type: 
  Country: None (occurrence: None)
  Receive Date: 20111104
  Receipt Date: 20111021
  Transmission Date: 20120403
  Serious: Yes (Hospitalization)
  Sender: FDA-Public Use
  Company Number: PHHY2011US47349

PATIENT
  Sex: Male
  Weight: 54.875 kg

DRUGS (2)
  1. EXJADE [Suspect]
     Indication: SICKLE CELL ANAEMIA
     Dosage: 1000 MG, QD
     Route: 048
     Dates: start: 20061220
  2. TORADOL [Concomitant]

REACTIONS (7)
  - DEEP VEIN THROMBOSIS [None]
  - PNEUMONIA [None]
  - MUSCLE ATROPHY [None]
  - BACK PAIN [None]
  - SICKLE CELL ANAEMIA WITH CRISIS [None]
  - PAIN IN EXTREMITY [None]
  - PAIN [None]
